FAERS Safety Report 7880251-4 (Version None)
Quarter: 2011Q4

REPORT INFORMATION
  Report Type: 
  Country: None (occurrence: None)
  Receive Date: 20111101
  Receipt Date: 20100902
  Transmission Date: 20120403
  Serious: No
  Sender: FDA-Public Use
  Company Number: US-BAYER-201032803NA

PATIENT
  Age: 65 Year
  Sex: Female

DRUGS (10)
  1. PERCOCET [Concomitant]
  2. TOPAMAX [Concomitant]
  3. PREDNISONE [Concomitant]
  4. LEVOTHYROXINE SODIUM [Concomitant]
  5. AVELOX [Suspect]
     Indication: LUNG INFECTION
     Route: 048
     Dates: start: 20100728, end: 20100803
  6. SINGULAIR [Concomitant]
  7. VERAPAMIL [Concomitant]
  8. FLEXERIL [Concomitant]
  9. VITAMINS WITH MINERALS [Concomitant]
  10. VICODIN [Concomitant]

REACTIONS (5)
  - PAIN [None]
  - SENSORY DISTURBANCE [None]
  - ARTHRALGIA [None]
  - MUSCULAR WEAKNESS [None]
  - OEDEMA PERIPHERAL [None]
